FAERS Safety Report 7014174-X (Version None)
Quarter: 2010Q3

REPORT INFORMATION
  Report Type: 
  Country: None (occurrence: None)
  Receive Date: 20100924
  Receipt Date: 20100924
  Transmission Date: 20110219
  Serious: Yes (Hospitalization)
  Sender: FDA-Public Use
  Company Number: None

PATIENT
  Age: 75 Year
  Sex: Female

DRUGS (1)
  1. FLUPHENAZINE [Suspect]
     Dosage: 1 MG   1 MG QAM, 2 MG QPM PO
     Route: 048

REACTIONS (2)
  - ATRIAL FIBRILLATION [None]
  - RENAL FAILURE ACUTE [None]
